FAERS Safety Report 7961414-6 (Version None)
Quarter: 2011Q4

REPORT INFORMATION
  Report Type: 
  Country: None (occurrence: None)
  Receive Date: 20111207
  Receipt Date: 20111128
  Transmission Date: 20120403
  Serious: Yes (Other)
  Sender: FDA-Public Use
  Company Number: US-JNJFOC-20111112551

PATIENT
  Sex: Male

DRUGS (3)
  1. XARELTO [Suspect]
     Indication: ORTHOPEDIC PROCEDURE
     Route: 048
  2. TRANEXAMIC ACID [Concomitant]
     Indication: SURGERY
  3. LOVENOX [Concomitant]

REACTIONS (1)
  - HAEMOGLOBIN DECREASED [None]
